FAERS Safety Report 9333212 (Version 5)
Quarter: 2013Q3

REPORT INFORMATION
  Report Type: Report from Study
  Country: FR (occurrence: FR)
  Receive Date: 20130606
  Receipt Date: 20130914
  Transmission Date: 20140515
  Serious: Yes (Hospitalization, Other)
  Sender: FDA-Public Use
  Company Number: FR-AMGEN-FRANI2013039968

PATIENT
  Age: 78 Year
  Sex: Male

DRUGS (4)
  1. ROMIPLOSTIM [Suspect]
     Indication: IMMUNE THROMBOCYTOPENIC PURPURA
     Dosage: 3 MUG/KG, QWK
     Route: 058
     Dates: start: 20110628, end: 20130506
  2. KARDEGIC [Concomitant]
     Dosage: 75 MG, UNK
  3. CRESTOR [Concomitant]
     Dosage: 5 MG, UNK
     Dates: start: 20110606
  4. INEXIUM [Concomitant]
     Dosage: UNK

REACTIONS (2)
  - Chronic myeloid leukaemia [Not Recovered/Not Resolved]
  - Polycythaemia [Not Recovered/Not Resolved]
